FAERS Safety Report 21123272 (Version 2)
Quarter: 2023Q1

REPORT INFORMATION
  Report Type: Spontaneous
  Country: CA (occurrence: CA)
  Receive Date: 20220724
  Receipt Date: 20230113
  Transmission Date: 20230418
  Serious: Yes (Life-Threatening, Other)
  Sender: FDA-Public Use
  Company Number: CA-SA-SAC20220721000835

PATIENT
  Age: 66 Year
  Sex: Female
  Weight: 93 kg

DRUGS (28)
  1. LOVENOX [Suspect]
     Active Substance: ENOXAPARIN SODIUM
     Indication: Deep vein thrombosis
     Dosage: 100 MG, BID
     Route: 058
     Dates: start: 20211026, end: 20211108
  2. ACETAMINOPHEN [Concomitant]
     Active Substance: ACETAMINOPHEN
  3. ASPIRIN [Concomitant]
     Active Substance: ASPIRIN
  4. ATORVASTATIN [Concomitant]
     Active Substance: ATORVASTATIN
     Indication: Coronary artery disease
     Route: 065
  5. ATROPINE [Concomitant]
     Active Substance: ATROPINE
  6. CYANOCOBALAMIN [Concomitant]
     Active Substance: CYANOCOBALAMIN
  7. DIMENHYDRINATE [Concomitant]
     Active Substance: DIMENHYDRINATE
  8. EZETIMIBE [Concomitant]
     Active Substance: EZETIMIBE
  9. EZETIMIBE [Concomitant]
     Active Substance: EZETIMIBE
  10. FERROUS SULFATE [Concomitant]
     Active Substance: FERROUS SULFATE
  11. GLYCERIN [Concomitant]
     Active Substance: GLYCERIN
  12. JANUVIA [Concomitant]
     Active Substance: SITAGLIPTIN PHOSPHATE
     Route: 048
  13. LORAZEPAM [Concomitant]
     Active Substance: LORAZEPAM
  14. METFORMIN [Concomitant]
     Active Substance: METFORMIN HYDROCHLORIDE
     Indication: Type 2 diabetes mellitus
  15. METHADONE [Concomitant]
     Active Substance: METHADONE HYDROCHLORIDE
  16. NICOTINE TRANSDERMAL SYSTEM [Concomitant]
     Active Substance: NICOTINE
     Route: 062
  17. OLANZAPINE [Concomitant]
     Active Substance: OLANZAPINE
     Route: 065
  18. ONDANSETRON [Concomitant]
     Active Substance: ONDANSETRON
  19. PANTOPRAZOLE [Concomitant]
     Active Substance: PANTOPRAZOLE
  20. POLYETHYLENE GLYCOLS [Concomitant]
     Active Substance: POLYETHYLENE GLYCOLS
  21. POTASSIUM CHLORIDE [Concomitant]
     Active Substance: POTASSIUM CHLORIDE
  22. SENNOSIDES [Concomitant]
     Active Substance: SENNOSIDES
  23. TAMSULOSIN [Concomitant]
     Active Substance: TAMSULOSIN
  24. ALUMINUM HYDROXIDE [Concomitant]
     Active Substance: ALUMINUM HYDROXIDE
  25. MAGNESIUM HYDROXIDE [Concomitant]
     Active Substance: MAGNESIUM HYDROXIDE
  26. NIACIN ALUMINUM [Concomitant]
     Active Substance: NIACIN ALUMINUM
  27. SITAGLIPTIN [Concomitant]
     Active Substance: SITAGLIPTIN
     Indication: Type 2 diabetes mellitus
  28. NEOTOP [GLYCOLIC ACID] [Concomitant]
     Dosage: UNK

REACTIONS (7)
  - Compartment syndrome [Recovering/Resolving]
  - Hypotension [Recovered/Resolved]
  - Hypovolaemia [Recovered/Resolved]
  - Haemoglobin decreased [Recovered/Resolved]
  - Haemorrhage [Recovered/Resolved]
  - Fasciotomy [Recovered/Resolved]
  - Cardiac arrest [Recovered/Resolved]

NARRATIVE: CASE EVENT DATE: 20211107
